FAERS Safety Report 11450321 (Version 1)
Quarter: 2015Q3

REPORT INFORMATION
  Report Type: Spontaneous
  Country: US (occurrence: US)
  Receive Date: 20150903
  Receipt Date: 20150903
  Transmission Date: 20151125
  Serious: No
  Sender: FDA-Public Use
  Company Number: US-ROCHE-1070264

PATIENT
  Age: 50 Year
  Sex: Female
  Weight: 103.51 kg

DRUGS (13)
  1. INCIVEK [Suspect]
     Active Substance: TELAPREVIR
     Indication: HEPATITIS C
     Route: 048
     Dates: start: 20120323
  2. CLONAZEPAM. [Concomitant]
     Active Substance: CLONAZEPAM
     Route: 065
  3. VITAMIN D3 [Concomitant]
     Active Substance: CHOLECALCIFEROL
     Dosage: DOSE: 2000 UNITS, STRENGTH: 1000 UNITS
     Route: 065
  4. FAMOTIDINE. [Concomitant]
     Active Substance: FAMOTIDINE
     Route: 065
  5. PEGASYS [Suspect]
     Active Substance: PEGINTERFERON ALFA-2A
     Indication: HEPATITIS C
     Dosage: STRENGTH: 180 MCG/0.5 ML SOLUTION
     Route: 058
     Dates: start: 20120323
  6. ADDERALL [Concomitant]
     Active Substance: AMPHETAMINE ASPARTATE\AMPHETAMINE SULFATE\DEXTROAMPHETAMINE SACCHARATE\DEXTROAMPHETAMINE SULFATE
     Route: 065
  7. HYDROCODONE/ACETAMINOPHEN [Concomitant]
     Active Substance: ACETAMINOPHEN\HYDROCODONE
     Dosage: STRENGTH: 10-325 MG/15 ML SOLUTION
     Route: 065
  8. PROCRIT [Concomitant]
     Active Substance: ERYTHROPOIETIN
     Dosage: STRENGTH: 20000 UNIT/ML SOLUTION, DOSE: 20000 U
     Route: 065
  9. ZOFRAN [Concomitant]
     Active Substance: ONDANSETRON HYDROCHLORIDE
     Route: 065
  10. LYRICA [Concomitant]
     Active Substance: PREGABALIN
     Route: 065
  11. CLOBETASOL PROPIONATE. [Concomitant]
     Active Substance: CLOBETASOL PROPIONATE
     Indication: RASH
     Route: 065
  12. PROZAC [Concomitant]
     Active Substance: FLUOXETINE HYDROCHLORIDE
     Route: 065
  13. RIBAVIRIN. [Suspect]
     Active Substance: RIBAVIRIN
     Indication: HEPATITIS C
     Route: 048
     Dates: start: 20120323

REACTIONS (14)
  - Glossodynia [Recovering/Resolving]
  - Tonsillectomy [Unknown]
  - Anaemia [Unknown]
  - Abdominal pain [Unknown]
  - Investigation [Unknown]
  - Liver function test abnormal [Unknown]
  - Adenoidectomy [Unknown]
  - Rash [Unknown]
  - Nausea [Unknown]
  - Substance abuse [Unknown]
  - Ear tube insertion [Unknown]
  - Depression [Unknown]
  - Gastritis [Unknown]
  - Plicated tongue [Unknown]

NARRATIVE: CASE EVENT DATE: 20120514
